FAERS Safety Report 6021816-4 (Version None)
Quarter: 2008Q4

REPORT INFORMATION
  Report Type: 
  Country: None (occurrence: None)
  Receive Date: 20081229
  Receipt Date: 20081217
  Transmission Date: 20090506
  Serious: Yes (Other)
  Sender: FDA-Public Use
  Company Number: DE-PFIZER INC-2008155892

PATIENT

DRUGS (2)
  1. PREGABALIN [Suspect]
     Indication: EPILEPSY
     Dosage: UNK
  2. CARBAMAZEPINE [Suspect]
     Indication: EPILEPSY
     Dosage: UNK

REACTIONS (1)
  - CENTRAL NERVOUS SYSTEM LESION [None]
